FAERS Safety Report 4588409-7 (Version None)
Quarter: 2005Q1

REPORT INFORMATION
  Report Type: 
  Country: None (occurrence: None)
  Receive Date: 20050215
  Receipt Date: 20050215
  Transmission Date: 20050727
  Serious: No
  Sender: FDA-Public Use
  Company Number: None

PATIENT
  Age: 62 Year
  Sex: Female
  Weight: 68.4932 kg

DRUGS (1)
  1. PAXIL [Suspect]

REACTIONS (8)
  - AGITATION [None]
  - DRUG WITHDRAWAL SYNDROME [None]
  - FATIGUE [None]
  - FEELING ABNORMAL [None]
  - INSOMNIA [None]
  - MALAISE [None]
  - PARAESTHESIA [None]
  - STOMACH DISCOMFORT [None]
